FAERS Safety Report 20638146 (Version 1)
Quarter: 2022Q1

REPORT INFORMATION
  Report Type: Spontaneous
  Country: JP (occurrence: JP)
  Receive Date: 20220325
  Receipt Date: 20220325
  Transmission Date: 20220423
  Serious: Yes (Death, Hospitalization)
  Sender: FDA-Public Use
  Company Number: JPN-CUMBERLAND-2022-JP-000002

PATIENT
  Age: 85 Year
  Sex: Female

DRUGS (2)
  1. REDITREX [Suspect]
     Active Substance: METHOTREXATE
     Route: 065
  2. TACROLIMUS [Concomitant]
     Active Substance: TACROLIMUS
     Route: 065

REACTIONS (12)
  - Tuberculosis [Fatal]
  - Drug eruption [Fatal]
  - Nephropathy toxic [Fatal]
  - Cellulitis staphylococcal [Fatal]
  - Tuberculosis [Fatal]
  - Epstein-Barr virus test positive [Fatal]
  - Lymphoproliferative disorder [Fatal]
  - Immune reconstitution inflammatory syndrome associated tuberculosis [Fatal]
  - Tonsillar inflammation [Fatal]
  - Erythema multiforme [Fatal]
  - Erythema [Fatal]
  - Pyrexia [Fatal]
